FAERS Safety Report 13583970 (Version 2)
Quarter: 2017Q2

REPORT INFORMATION
  Report Type: Report from Study
  Country: None (occurrence: AU)
  Receive Date: 20170526
  Receipt Date: 20170602
  Transmission Date: 20170830
  Serious: Yes (Death, Hospitalization, Other)
  Sender: FDA-Public Use
  Company Number: AU-ABBVIE-17P-008-1952071-00

PATIENT
  Age: 81 Year
  Sex: Female

DRUGS (2)
  1. DUODOPA [Suspect]
     Active Substance: CARBIDOPA\LEVODOPA
     Indication: PARKINSON^S DISEASE
     Dosage: 16 HOUR INFUSION
     Route: 050
     Dates: start: 20151113
  2. DUODOPA [Suspect]
     Active Substance: CARBIDOPA\LEVODOPA
     Dosage: 16 HOUR INFUSION
     Route: 050
     Dates: start: 20170424

REACTIONS (5)
  - Hypotension [Unknown]
  - Abdominal pain [Unknown]
  - Intestinal obstruction [Recovering/Resolving]
  - Death [Fatal]
  - Post procedural haemorrhage [Unknown]

NARRATIVE: CASE EVENT DATE: 201704
